FAERS Safety Report 14348075 (Version 1)
Quarter: 2018Q1

REPORT INFORMATION
  Report Type: Spontaneous
  Country: US (occurrence: US)
  Receive Date: 20180103
  Receipt Date: 20180103
  Transmission Date: 20180509
  Serious: No
  Sender: FDA-Public Use
  Company Number: US-ABBVIE-17P-163-2090611-00

PATIENT
  Age: 46 Year
  Sex: Female

DRUGS (2)
  1. LUPRON DEPOT [Suspect]
     Active Substance: LEUPROLIDE ACETATE
     Indication: BREAST CANCER
     Route: 030
  2. LUPRON DEPOT [Suspect]
     Active Substance: LEUPROLIDE ACETATE
     Indication: BREAST CANCER
     Dosage: DID NOT RECEIVE DRUG
     Route: 030

REACTIONS (3)
  - Intercepted drug administration error [Unknown]
  - Product selection error [Unknown]
  - Off label use [Unknown]

NARRATIVE: CASE EVENT DATE: 20170831
